FAERS Safety Report 11047215 (Version 1)
Quarter: 2015Q2

REPORT INFORMATION
  Report Type: Spontaneous
  Country: JP (occurrence: JP)
  Receive Date: 20150420
  Receipt Date: 20150420
  Transmission Date: 20150821
  Serious: Yes (Hospitalization, Other)
  Sender: FDA-Public Use
  Company Number: JP-PFIZER INC-2015133461

PATIENT
  Age: 87 Year
  Sex: Female

DRUGS (3)
  1. ZOSYN [Suspect]
     Active Substance: PIPERACILLIN SODIUM\TAZOBACTAM SODIUM
     Indication: PNEUMONIA
     Dosage: UNK
     Route: 042
     Dates: start: 20150224, end: 20150309
  2. LASIX [Concomitant]
     Active Substance: FUROSEMIDE
     Dosage: UNK
     Dates: start: 20150224
  3. HANP [Concomitant]
     Active Substance: CARPERITIDE
     Dosage: UNK
     Route: 041
     Dates: start: 20150224

REACTIONS (1)
  - Pulmonary eosinophilia [Recovered/Resolved]

NARRATIVE: CASE EVENT DATE: 20150309
